FAERS Safety Report 15958976 (Version 1)
Quarter: 2019Q1

REPORT INFORMATION
  Report Type: Spontaneous
  Country: US (occurrence: US)
  Receive Date: 20190214
  Receipt Date: 20190214
  Transmission Date: 20190417
  Serious: No
  Sender: FDA-Public Use
  Company Number: US-GLENMARK PHARMACEUTICALS-2018GMK038823

PATIENT

DRUGS (2)
  1. OXCARBAZEPINE. [Suspect]
     Active Substance: OXCARBAZEPINE
     Indication: PARTIAL SEIZURES
     Dosage: 600 MG, BID; START DATE: UNSPECIFIED (MANY YEARS AGO)
     Route: 065
  2. OXCARBAZEPINE. [Suspect]
     Active Substance: OXCARBAZEPINE
     Indication: PARTIAL SEIZURES
     Dosage: 150 MG AND HALF OF 150 MG (225MG), BID; START DATE: UNSPECIFIED (MANY YEARS AGO)
     Route: 065

REACTIONS (4)
  - Fatigue [Not Recovered/Not Resolved]
  - Product availability issue [Unknown]
  - Muscle spasms [Not Recovered/Not Resolved]
  - Vision blurred [Not Recovered/Not Resolved]
